FAERS Safety Report 4689526-3 (Version None)
Quarter: 2005Q2

REPORT INFORMATION
  Report Type: 
  Country: None (occurrence: None)
  Receive Date: 20050613
  Receipt Date: 20050613
  Transmission Date: 20051028
  Serious: Yes (Disabling)
  Sender: FDA-Public Use
  Company Number: None

PATIENT
  Sex: Male
  Weight: 124.7392 kg

DRUGS (7)
  1. VIAGRA [Suspect]
     Indication: ERECTILE DYSFUNCTION
     Dosage: AS NEEDED
  2. COMBIVENT [Concomitant]
  3. QVAR 40 [Concomitant]
  4. SINGULAIR [Concomitant]
  5. BENCONASE [Concomitant]
  6. HYZDAR [Concomitant]
  7. VERELAN PM [Concomitant]

REACTIONS (6)
  - ACTIVITIES OF DAILY LIVING IMPAIRED [None]
  - BLINDNESS UNILATERAL [None]
  - EYE HAEMORRHAGE [None]
  - IMPAIRED DRIVING ABILITY [None]
  - PAPILLOEDEMA [None]
  - PHOTOPSIA [None]
